FAERS Safety Report 15095502 (Version 1)
Quarter: 2018Q3

REPORT INFORMATION
  Report Type: Spontaneous
  Country: US (occurrence: US)
  Receive Date: 20180702
  Receipt Date: 20180702
  Transmission Date: 20181010
  Serious: No
  Sender: FDA-Public Use
  Company Number: US-TEVA-2018-US-904400

PATIENT
  Sex: Male

DRUGS (1)
  1. CLONIDINE. [Suspect]
     Active Substance: CLONIDINE
     Indication: HYPERTENSION

REACTIONS (5)
  - Balance disorder [Unknown]
  - Application site erythema [Unknown]
  - Impaired quality of life [Unknown]
  - Dizziness [Unknown]
  - Discomfort [Unknown]
